FAERS Safety Report 8699092 (Version 2)
Quarter: 2013Q2

REPORT INFORMATION
  Report Type: Spontaneous
  Country: FR (occurrence: FR)
  Receive Date: 20120802
  Receipt Date: 20130408
  Transmission Date: 20140414
  Serious: Yes (Hospitalization)
  Sender: FDA-Public Use
  Company Number: FR-009507513-1207FRA012776

PATIENT
  Age: 54 Year
  Sex: Female

DRUGS (2)
  1. TRUSOPT [Suspect]
     Dosage: UNK
     Route: 031
     Dates: start: 19980101
  2. DUOTRAV OPHTHALMIC SOLUTION (DUO-TRAVATAN) [Suspect]
     Dosage: UNK
     Route: 031
     Dates: start: 20110101

REACTIONS (1)
  - Hepatic cirrhosis [Recovered/Resolved]
